FAERS Safety Report 13464915 (Version 2)
Quarter: 2017Q4

REPORT INFORMATION
  Report Type: Spontaneous
  Country: US (occurrence: US)
  Receive Date: 20170420
  Receipt Date: 20171108
  Transmission Date: 20180320
  Serious: No
  Sender: FDA-Public Use
  Company Number: US-TEVA-758804ACC

PATIENT
  Sex: Female

DRUGS (7)
  1. CHLORPROMAZINE. [Concomitant]
     Active Substance: CHLORPROMAZINE
  2. BACLOFEN. [Concomitant]
     Active Substance: BACLOFEN
  3. EXCEDRIN [Concomitant]
     Active Substance: ACETAMINOPHEN\ASPIRIN\CAFFEINE
  4. COPAXONE [Suspect]
     Active Substance: GLATIRAMER ACETATE
     Indication: MULTIPLE SCLEROSIS
     Route: 058
     Dates: start: 20140604
  5. XANAX [Concomitant]
     Active Substance: ALPRAZOLAM
  6. METOPROLOL. [Concomitant]
     Active Substance: METOPROLOL
  7. AMOXICILLIN. [Concomitant]
     Active Substance: AMOXICILLIN

REACTIONS (5)
  - Depression [Not Recovered/Not Resolved]
  - Fatigue [Not Recovered/Not Resolved]
  - Malaise [Unknown]
  - Restless legs syndrome [Not Recovered/Not Resolved]
  - Drug dose omission [Unknown]
